FAERS Safety Report 5490370-8 (Version None)
Quarter: 2007Q4

REPORT INFORMATION
  Report Type: 
  Country: None (occurrence: None)
  Receive Date: 20071015
  Receipt Date: 20070605
  Transmission Date: 20080405
  Serious: Yes (Other)
  Sender: FDA-Public Use
  Company Number: 37841

PATIENT
  Age: 23 Year
  Sex: Female
  Weight: 58.9676 kg

DRUGS (1)
  1. LEUPROLIDE ACETATE [Suspect]
     Indication: INFERTILITY
     Dosage: 1 INJECTION PER DAY
     Dates: start: 20070531

REACTIONS (1)
  - ABDOMINAL PAIN [None]
